FAERS Safety Report 19730331 (Version 1)
Quarter: 2021Q3

REPORT INFORMATION
  Report Type: Spontaneous
  Country: RU (occurrence: RU)
  Receive Date: 20210820
  Receipt Date: 20210820
  Transmission Date: 20211014
  Serious: Yes (Other)
  Sender: FDA-Public Use
  Company Number: RU-ASTRAZENECA-2021A680038

PATIENT
  Age: 71 Year
  Sex: Male

DRUGS (1)
  1. PULMICORT TURBUHALER [Suspect]
     Active Substance: BUDESONIDE
     Route: 055

REACTIONS (4)
  - Oxygen saturation decreased [Unknown]
  - Heart rate increased [Unknown]
  - Wheezing [Unknown]
  - Drug ineffective [Not Recovered/Not Resolved]
